FAERS Safety Report 4917788-3 (Version None)
Quarter: 2006Q1

REPORT INFORMATION
  Report Type: 
  Country: None (occurrence: None)
  Receive Date: 20060221
  Receipt Date: 20060110
  Transmission Date: 20060701
  Serious: Yes (Hospitalization, Other)
  Sender: FDA-Public Use
  Company Number: GB-BRISTOL-MYERS SQUIBB COMPANY-13243803

PATIENT
  Sex: Male

DRUGS (1)
  1. KENALOG [Suspect]
     Indication: ARTHRITIS

REACTIONS (2)
  - RENAL PAIN [None]
  - SCIATICA [None]
